FAERS Safety Report 25038134 (Version 3)
Quarter: 2025Q4

REPORT INFORMATION
  Report Type: Report from Study
  Country: CA (occurrence: CA)
  Receive Date: 20250304
  Receipt Date: 20251119
  Transmission Date: 20260117
  Serious: Yes (Death, Hospitalization, Other)
  Sender: PFIZER
  Company Number: CA-PFIZER INC-202300100144

PATIENT
  Age: 56 Year
  Sex: Male

DRUGS (4)
  1. RITUXIMAB [Suspect]
     Active Substance: RITUXIMAB
     Indication: Rheumatoid arthritis
     Dosage: 1000 MG
     Route: 042
  2. ACETAMINOPHEN [Concomitant]
     Active Substance: ACETAMINOPHEN
     Dosage: 650 MG
     Route: 048
  3. DIPHENHYDRAMINE HYDROCHLORIDE [Concomitant]
     Active Substance: DIPHENHYDRAMINE HYDROCHLORIDE
     Dosage: 50 MG
     Route: 048
  4. METHYLPREDNISOLONE [Concomitant]
     Active Substance: METHYLPREDNISOLONE
     Dosage: 100 MG
     Route: 042

REACTIONS (14)
  - Death [Fatal]
  - Dyspnoea [Fatal]
  - Bronchitis [Fatal]
  - Influenza like illness [Fatal]
  - Cachexia [Fatal]
  - Peripheral venous disease [Fatal]
  - Abnormal behaviour [Fatal]
  - Irritability [Fatal]
  - Neurogenic shock [Fatal]
  - Tension [Fatal]
  - Infection [Fatal]
  - Lung disorder [Fatal]
  - Substance abuse [Fatal]
  - Product dose omission issue [Unknown]
